FAERS Safety Report 7935941-1 (Version None)
Quarter: 2011Q4

REPORT INFORMATION
  Report Type: 
  Country: None (occurrence: None)
  Receive Date: 20111123
  Receipt Date: 20111116
  Transmission Date: 20120403
  Serious: Yes (Death, Life-Threatening, Hospitalization)
  Sender: FDA-Public Use
  Company Number: NO-CELGENEUS-122-CCAZA-11101397

PATIENT
  Sex: Male
  Weight: 67 kg

DRUGS (4)
  1. NEUPOGEN [Concomitant]
     Indication: NEUTROPENIA
     Dosage: 300 MICROGRAM
     Route: 065
     Dates: start: 20080101, end: 20111010
  2. AZACITIDINE [Suspect]
     Dosage: 137MG
     Route: 058
     Dates: start: 20110919, end: 20110923
  3. ONDANSETRON [Concomitant]
     Indication: PROPHYLAXIS
     Route: 065
     Dates: start: 20110822
  4. AZACITIDINE [Suspect]
     Indication: MYELODYSPLASTIC SYNDROME
     Dosage: 137MG
     Route: 058
     Dates: start: 20110822

REACTIONS (2)
  - FEBRILE NEUTROPENIA [None]
  - ESCHERICHIA SEPSIS [None]
